FAERS Safety Report 23287264 (Version 1)
Quarter: 2023Q4

REPORT INFORMATION
  Report Type: Spontaneous
  Country: JP (occurrence: JP)
  Receive Date: 20231212
  Receipt Date: 20231212
  Transmission Date: 20240109
  Serious: Yes (Death, Hospitalization, Other)
  Sender: FDA-Public Use
  Company Number: JP-STRIDES ARCOLAB LIMITED-2023SP014393

PATIENT
  Age: 82 Year
  Sex: Male

DRUGS (7)
  1. COLCHICINE [Suspect]
     Active Substance: COLCHICINE
     Indication: Trisomy 8
     Dosage: 0.5 MILLIGRAM DAILY
     Route: 065
  2. COLCHICINE [Suspect]
     Active Substance: COLCHICINE
     Indication: Behcet^s syndrome
  3. COLCHICINE [Suspect]
     Active Substance: COLCHICINE
     Indication: Myelodysplastic syndrome
  4. PREDNISOLONE [Suspect]
     Active Substance: PREDNISOLONE
     Indication: Behcet^s syndrome
     Dosage: 25 MILLIGRAM/DAY
     Route: 065
  5. PREDNISOLONE [Suspect]
     Active Substance: PREDNISOLONE
     Indication: Trisomy 8
  6. PREDNISOLONE [Suspect]
     Active Substance: PREDNISOLONE
     Indication: Myelodysplastic syndrome
  7. CANAKINUMAB [Suspect]
     Active Substance: CANAKINUMAB
     Indication: Familial mediterranean fever
     Dosage: UNK
     Route: 065

REACTIONS (6)
  - Shock haemorrhagic [Fatal]
  - Diverticulum intestinal haemorrhagic [Fatal]
  - Myelodysplastic syndrome [Unknown]
  - Therapy partial responder [Unknown]
  - Drug ineffective [Unknown]
  - Off label use [Unknown]
